FAERS Safety Report 8223253-0 (Version None)
Quarter: 2012Q1

REPORT INFORMATION
  Report Type: 
  Country: None (occurrence: None)
  Receive Date: 20120321
  Receipt Date: 20120308
  Transmission Date: 20120608
  Serious: Yes (Other)
  Sender: FDA-Public Use
  Company Number: US-ROCHE-793597

PATIENT
  Sex: Male
  Weight: 63.56 kg

DRUGS (1)
  1. ACCUTANE [Suspect]
     Indication: ACNE
     Dosage: 40MG, 60MG
     Route: 048
     Dates: start: 19991101, end: 20000531

REACTIONS (9)
  - DRY SKIN [None]
  - LIP DRY [None]
  - SEBORRHOEIC DERMATITIS [None]
  - IRRITABLE BOWEL SYNDROME [None]
  - LIP DISORDER [None]
  - DRY EYE [None]
  - DIVERTICULITIS [None]
  - CYST [None]
  - INFLAMMATORY BOWEL DISEASE [None]
